FAERS Safety Report 18797363 (Version 1)
Quarter: 2021Q1

REPORT INFORMATION
  Report Type: Spontaneous
  Country: US (occurrence: US)
  Receive Date: 20210128
  Receipt Date: 20210128
  Transmission Date: 20210419
  Serious: Yes (Hospitalization, Other)
  Sender: FDA-Public Use
  Company Number: US-B.I. PHARMACEUTICALS,INC./RIDGEFIELD-2021-BI-078054

PATIENT
  Age: 56 Year
  Sex: Male

DRUGS (1)
  1. JARDIANCE [Suspect]
     Active Substance: EMPAGLIFLOZIN
     Indication: TYPE 2 DIABETES MELLITUS
     Route: 065
     Dates: start: 201606

REACTIONS (9)
  - Ketoacidosis [Recovering/Resolving]
  - Weight decreased [Unknown]
  - Vomiting [Unknown]
  - Dizziness [Recovering/Resolving]
  - Nausea [Unknown]
  - Vestibulitis [Unknown]
  - Vertigo positional [Unknown]
  - Dehydration [Unknown]
  - Vertigo [Unknown]

NARRATIVE: CASE EVENT DATE: 2016
